FAERS Safety Report 9712487 (Version 1)
Quarter: 2013Q4

REPORT INFORMATION
  Report Type: Spontaneous
  Country: US (occurrence: US)
  Receive Date: 20131126
  Receipt Date: 20131126
  Transmission Date: 20140711
  Serious: No
  Sender: FDA-Public Use
  Company Number: US-BRISTOL-MYERS SQUIBB COMPANY-19187905

PATIENT
  Age: 57 Year
  Sex: Male
  Weight: 96.14 kg

DRUGS (2)
  1. BYDUREON [Suspect]
     Indication: TYPE 2 DIABETES MELLITUS
     Route: 058
     Dates: start: 2013, end: 2013
  2. GLUCOPHAGE [Concomitant]

REACTIONS (1)
  - Injection site nodule [Unknown]
